FAERS Safety Report 9628360 (Version 2)
Quarter: 2014Q1

REPORT INFORMATION
  Report Type: Spontaneous
  Country: US (occurrence: US)
  Receive Date: 20131017
  Receipt Date: 20140122
  Transmission Date: 20141002
  Serious: Yes (Hospitalization, Other)
  Sender: FDA-Public Use
  Company Number: US-JNJFOC-20131002859

PATIENT
  Age: 73 Year
  Sex: Female
  Weight: 58.06 kg

DRUGS (6)
  1. ROGAINE FOR WOMEN REGULAR STRENGTH 2% [Suspect]
     Route: 061
  2. ROGAINE REGULAR STRENGTH WOMEN (2%) [Suspect]
     Indication: ALOPECIA
     Route: 061
  3. BIOTIN [Concomitant]
     Indication: NUTRITIONAL SUPPLEMENTATION
     Dosage: START DATE: 3 MONTHS AGO
     Route: 065
  4. MULTIVITAMINS [Concomitant]
     Indication: NUTRITIONAL SUPPLEMENTATION
     Route: 065
  5. VITAMIN D3 [Concomitant]
     Indication: HYPOVITAMINOSIS
     Route: 065
  6. VERAPAMIL [Concomitant]
     Indication: HYPERTENSION
     Route: 065

REACTIONS (2)
  - Blood pressure increased [Recovered/Resolved]
  - Alopecia [Not Recovered/Not Resolved]
